APPROVED DRUG PRODUCT: TRAMADOL HYDROCHLORIDE
Active Ingredient: TRAMADOL HYDROCHLORIDE
Strength: 50MG
Dosage Form/Route: TABLET;ORAL
Application: A202390 | Product #001
Applicant: ACCORD HEALTHCARE INC
Approved: May 16, 2013 | RLD: No | RS: No | Type: DISCN